FAERS Safety Report 6939173-5 (Version None)
Quarter: 2010Q3

REPORT INFORMATION
  Report Type: 
  Country: None (occurrence: None)
  Receive Date: 20100824
  Receipt Date: 20100819
  Transmission Date: 20110219
  Serious: Yes (Hospitalization, Other)
  Sender: FDA-Public Use
  Company Number: US-PFIZER INC-2010082749

PATIENT
  Sex: Male
  Weight: 96.4 kg

DRUGS (4)
  1. ATGAM [Suspect]
     Indication: APLASTIC ANAEMIA
     Dosage: UNK
     Route: 042
     Dates: start: 20000101
  2. ATGAM [Suspect]
     Dosage: UNK
     Route: 042
     Dates: start: 20060101
  3. ATGAM [Suspect]
     Dosage: 3750 MG
     Route: 042
     Dates: start: 20100630
  4. PREDNISONE [Concomitant]
     Indication: PROPHYLAXIS
     Dosage: UNK

REACTIONS (5)
  - APLASTIC ANAEMIA [None]
  - CHILLS [None]
  - LIVER FUNCTION TEST ABNORMAL [None]
  - RASH [None]
  - VIRAL INFECTION [None]
